FAERS Safety Report 18451648 (Version 5)
Quarter: 2024Q4

REPORT INFORMATION
  Report Type: Report from Study
  Country: KR (occurrence: KR)
  Receive Date: 20201102
  Receipt Date: 20241220
  Transmission Date: 20250115
  Serious: Yes (Death, Other)
  Sender: GLAXOSMITHKLINE
  Company Number: KR-TAKEDA-2020TJP023000

PATIENT
  Age: 52 Year
  Sex: Female

DRUGS (28)
  1. NIRAPARIB [Suspect]
     Active Substance: NIRAPARIB
     Indication: Malignant peritoneal neoplasm
     Dosage: 20 MG, QD
     Route: 048
     Dates: start: 20200917, end: 20201012
  2. NIRAPARIB [Suspect]
     Active Substance: NIRAPARIB
     Indication: Ovarian cancer
  3. NIRAPARIB [Suspect]
     Active Substance: NIRAPARIB
     Indication: Fallopian tube cancer
  4. Citopcin [Concomitant]
     Indication: Prophylaxis
     Dosage: 50 ML, BID
     Route: 042
     Dates: start: 20200916, end: 20200918
  5. LASIX [Concomitant]
     Active Substance: FUROSEMIDE
     Indication: Product used for unknown indication
     Dosage: UNK UNK, BID
     Route: 048
     Dates: start: 20200917
  6. GASTER [Concomitant]
     Active Substance: FAMOTIDINE
     Indication: Gastritis
     Dosage: UNK
     Route: 048
     Dates: start: 20200918, end: 20201011
  7. MAGNESIUM HYDROXIDE [Concomitant]
     Active Substance: MAGNESIUM HYDROXIDE
     Indication: Gastritis
     Dosage: UNK UNK, QD
     Route: 048
     Dates: start: 20200918, end: 20201011
  8. PHAZYME [Concomitant]
     Active Substance: DIMETHICONE 410
     Indication: Gastritis
     Dosage: UNK UNK, QD
     Route: 048
     Dates: start: 20200918, end: 20201011
  9. DEXTROSE [Concomitant]
     Active Substance: DEXTROSE MONOHYDRATE
     Indication: Dizziness
     Dosage: 500 ML, QD
     Route: 042
     Dates: start: 20200927, end: 20200927
  10. SODIUM CHLORIDE [Concomitant]
     Active Substance: SODIUM CHLORIDE
     Indication: Ovarian cancer
     Dosage: 1000 ML, QD
     Route: 042
     Dates: start: 20200927, end: 20200927
  11. SODIUM CHLORIDE [Concomitant]
     Active Substance: SODIUM CHLORIDE
     Indication: Dizziness
     Dosage: 100 ML, QD
     Route: 042
     Dates: start: 20200927, end: 20200927
  12. SODIUM CHLORIDE [Concomitant]
     Active Substance: SODIUM CHLORIDE
     Dosage: 1000 ML, QD
     Route: 042
     Dates: start: 20201005, end: 20201013
  13. AMINO ACIDS\DEXTROSE\ELECTROLYTES NOS\SOYBEAN OIL\VITAMINS [Concomitant]
     Active Substance: AMINO ACIDS\DEXTROSE\ELECTROLYTES NOS\SOYBEAN OIL\VITAMINS
     Indication: Ovarian cancer
     Dosage: 654 ML, QD
     Route: 042
     Dates: start: 20201005, end: 20201007
  14. CEFAZOLIN SODIUM [Concomitant]
     Active Substance: CEFAZOLIN SODIUM
     Indication: Ovarian cancer
     Dosage: UNK UNK, TID
     Route: 042
     Dates: start: 20201005, end: 20201010
  15. FERINJECT [Concomitant]
     Active Substance: FERRIC CARBOXYMALTOSE
     Indication: Ovarian cancer
     Dosage: UNK UNK, QD
     Route: 042
     Dates: start: 20201005, end: 20201005
  16. BOLGRE [Concomitant]
     Indication: Ovarian cancer
     Dosage: UNK, BID
     Route: 048
     Dates: start: 20201005, end: 20201011
  17. XYZAL [Concomitant]
     Active Substance: LEVOCETIRIZINE DIHYDROCHLORIDE
     Indication: Ovarian cancer
     Dosage: UNK, QD
     Route: 048
     Dates: start: 20201005, end: 20201011
  18. BEAROBAN [Concomitant]
     Indication: Skin mass
     Dosage: 10 GRAM, TID
     Route: 062
     Dates: start: 20201005, end: 20201013
  19. NADOXOL [Concomitant]
     Indication: Ovarian cancer
     Dosage: UNK, QD
     Route: 042
     Dates: start: 20201006, end: 20201006
  20. KEROMIN [Concomitant]
     Indication: Ovarian cancer
     Dosage: UNK
     Route: 042
     Dates: start: 20201007, end: 20201007
  21. KEROMIN [Concomitant]
     Dosage: UNK
     Route: 042
     Dates: start: 20201009, end: 20201009
  22. KEROMIN [Concomitant]
     Dosage: UNK
     Route: 042
     Dates: start: 20201010, end: 20201010
  23. TAZOPERAN [Concomitant]
     Indication: Ovarian cancer
     Dosage: UNK UNK, TID
     Route: 042
     Dates: start: 20201011, end: 20201011
  24. MAXIPIME [Concomitant]
     Active Substance: CEFEPIME HYDROCHLORIDE
     Indication: Ovarian cancer
     Dosage: UNK UNK, TID
     Route: 042
     Dates: start: 20201012, end: 20201012
  25. ALFUZOSIN [Concomitant]
     Active Substance: ALFUZOSIN
     Indication: Neurogenic bladder
     Dosage: UNK UNK, QD
     Route: 048
     Dates: start: 20180823
  26. MIRABEGRON [Concomitant]
     Active Substance: MIRABEGRON
     Indication: Neurogenic bladder
     Dosage: UNK UNK, QD
     Route: 048
     Dates: start: 20180823
  27. Norpin [Concomitant]
     Indication: Ovarian cancer
     Dosage: UNK UNK, TID
     Route: 042
     Dates: start: 20201012, end: 20201012
  28. Norpin [Concomitant]
     Dosage: UNK UNK, TID
     Route: 042
     Dates: start: 20201013, end: 20201013

REACTIONS (1)
  - Ovarian cancer [Fatal]

NARRATIVE: CASE EVENT DATE: 20201005
